FAERS Safety Report 6255506-X (Version None)
Quarter: 2009Q3

REPORT INFORMATION
  Report Type: 
  Country: None (occurrence: None)
  Receive Date: 20090702
  Receipt Date: 20090629
  Transmission Date: 20100115
  Serious: Yes (Other)
  Sender: FDA-Public Use
  Company Number: GB-AMGEN-UK353445

PATIENT
  Sex: Male
  Weight: 79 kg

DRUGS (2)
  1. PANITUMUMAB [Suspect]
     Indication: COLORECTAL CANCER
     Route: 042
     Dates: start: 20090612
  2. IRINOTECAN HCL [Suspect]
     Route: 042
     Dates: start: 20090612

REACTIONS (1)
  - PYREXIA [None]
